FAERS Safety Report 6741360-6 (Version None)
Quarter: 2010Q2

REPORT INFORMATION
  Report Type: 
  Country: None (occurrence: None)
  Receive Date: 20100524
  Receipt Date: 20100511
  Transmission Date: 20101027
  Serious: Yes (Life-Threatening)
  Sender: FDA-Public Use
  Company Number: 585806

PATIENT
  Age: 28 Year
  Sex: Female
  Weight: 76 kg

DRUGS (2)
  1. BUPIVACINE HYDROCHLORIDE) [Suspect]
     Indication: PAIN
     Dosage: CONTINUOUS
     Dates: start: 20100321, end: 20100323
  2. DILAUDID [Concomitant]

REACTIONS (6)
  - BLOOD POTASSIUM DECREASED [None]
  - BLOOD PRESSURE DECREASED [None]
  - CARDIOMYOPATHY [None]
  - HALLUCINATION [None]
  - HEART RATE INCREASED [None]
  - OFF LABEL USE [None]
